FAERS Safety Report 23538659 (Version 1)
Quarter: 2024Q1

REPORT INFORMATION
  Report Type: Spontaneous
  Country: SE (occurrence: SE)
  Receive Date: 20240219
  Receipt Date: 20240219
  Transmission Date: 20240410
  Serious: Yes (Other)
  Sender: FDA-Public Use
  Company Number: None

PATIENT
  Age: 75 Year
  Sex: Male

DRUGS (3)
  1. EZETIMIBE [Suspect]
     Active Substance: EZETIMIBE
     Indication: Hyperlipidaemia
     Dosage: 10 MILLIGRAM, QD
     Route: 048
     Dates: start: 20201218, end: 20240124
  2. DAPAGLIFLOZIN [Suspect]
     Active Substance: DAPAGLIFLOZIN
     Indication: Renal failure
     Dosage: 5 MILLIGRAM, QD
     Route: 048
     Dates: start: 20221108, end: 20240122
  3. DAPAGLIFLOZIN [Suspect]
     Active Substance: DAPAGLIFLOZIN
     Indication: Renal failure
     Dosage: 5 MILLIGRAM, QD
     Route: 048
     Dates: start: 20221108, end: 20240122

REACTIONS (3)
  - Gastric ulcer [Unknown]
  - Oesophagitis [Unknown]
  - Pancreatitis [Recovered/Resolved]
